FAERS Safety Report 11657782 (Version 2)
Quarter: 2015Q4

REPORT INFORMATION
  Report Type: Report from Study
  Country: US (occurrence: US)
  Receive Date: 20151023
  Receipt Date: 20151027
  Transmission Date: 20160304
  Serious: No
  Sender: FDA-Public Use
  Company Number: US-ABBVIE-15P-163-1400483-00

PATIENT
  Age: 29 Year
  Sex: Female

DRUGS (6)
  1. LUPRON DEPOT [Suspect]
     Active Substance: LEUPROLIDE ACETATE
     Indication: ENDOMETRIOSIS
     Route: 058
     Dates: start: 20150501
  2. PREVPAC [Concomitant]
     Active Substance: AMOXICILLIN\CLARITHROMYCIN\LANSOPRAZOLE
     Indication: GASTRITIS
     Route: 065
     Dates: end: 20150510
  3. OMEPRAZOLE. [Concomitant]
     Active Substance: OMEPRAZOLE
     Indication: GASTROOESOPHAGEAL REFLUX DISEASE
     Route: 065
  4. CARAFATE [Concomitant]
     Active Substance: SUCRALFATE
     Indication: GASTRITIS
     Route: 065
  5. NORDETTE BIRTH CONTROL [Concomitant]
     Indication: PRODUCT USED FOR UNKNOWN INDICATION
     Dosage: 0.15MG/0.03MG
     Route: 048
  6. ZANTAC [Concomitant]
     Active Substance: RANITIDINE HYDROCHLORIDE
     Indication: GASTROOESOPHAGEAL REFLUX DISEASE
     Route: 065

REACTIONS (15)
  - Ear discomfort [Recovering/Resolving]
  - Constipation [Not Recovered/Not Resolved]
  - Headache [Recovering/Resolving]
  - Discomfort [Recovered/Resolved]
  - Ear pain [Not Recovered/Not Resolved]
  - Injection site swelling [Not Recovered/Not Resolved]
  - Neck pain [Recovering/Resolving]
  - Ear discomfort [Recovering/Resolving]
  - Pain in jaw [Recovered/Resolved]
  - Gastritis [Not Recovered/Not Resolved]
  - Tooth infection [Recovered/Resolved]
  - Pain in jaw [Recovered/Resolved]
  - Tooth extraction [Recovered/Resolved]
  - Discomfort [Recovered/Resolved]
  - Injection site pain [Not Recovered/Not Resolved]

NARRATIVE: CASE EVENT DATE: 20150501
